FAERS Safety Report 9391553 (Version 2)
Quarter: 2013Q3

REPORT INFORMATION
  Report Type: Report from Study
  Country: JP (occurrence: JP)
  Receive Date: 20130709
  Receipt Date: 20130813
  Transmission Date: 20140515
  Serious: Yes (Hospitalization)
  Sender: FDA-Public Use
  Company Number: JP-EISAI INC-E2020-12602-SOL-JP

PATIENT
  Age: 87 Year
  Sex: Female

DRUGS (3)
  1. ARICEPT [Suspect]
     Indication: DEMENTIA ALZHEIMER^S TYPE
     Route: 048
     Dates: start: 20110601, end: 20110613
  2. ARICEPT [Suspect]
     Route: 048
     Dates: start: 20110614, end: 20111222
  3. ARICEPT [Suspect]
     Route: 048
     Dates: start: 20111223

REACTIONS (1)
  - Pneumonia aspiration [Recovered/Resolved]
